FAERS Safety Report 9365616 (Version 1)
Quarter: 2013Q2

REPORT INFORMATION
  Report Type: Spontaneous
  Country: US (occurrence: None)
  Receive Date: 20130624
  Receipt Date: 20130624
  Transmission Date: 20140414
  Serious: Yes (Hospitalization)
  Sender: FDA-Public Use
  Company Number: None

PATIENT
  Age: 56 Year
  Sex: Male
  Weight: 144.5 kg

DRUGS (1)
  1. FERRIPROX [Suspect]
     Indication: HEREDITARY HAEMOCHROMATOSIS
     Dosage: 1000MG TID PO
     Route: 048
     Dates: start: 20111221, end: 20130514

REACTIONS (3)
  - Fall [None]
  - Liver injury [None]
  - Iron overload [None]
